FAERS Safety Report 22521760 (Version 1)
Quarter: 2023Q2

REPORT INFORMATION
  Report Type: Report from Study
  Country: US (occurrence: US)
  Receive Date: 20230605
  Receipt Date: 20230605
  Transmission Date: 20230721
  Serious: Yes (Hospitalization, Other)
  Sender: FDA-Public Use
  Company Number: US-002147023-NVSC2023US121500

PATIENT
  Age: 47 Year
  Sex: Female

DRUGS (9)
  1. COSENTYX [Suspect]
     Active Substance: SECUKINUMAB
     Indication: Psoriasis
     Dosage: UNK
     Route: 065
  2. CLOBETASOL [Suspect]
     Active Substance: CLOBETASOL
     Indication: Psoriasis
     Route: 065
  3. TRIAMCINOLONE [Suspect]
     Active Substance: TRIAMCINOLONE
     Indication: Psoriasis
     Dosage: UNK
     Route: 065
  4. TRIAMCINOLONE [Suspect]
     Active Substance: TRIAMCINOLONE
     Dosage: 454 G
     Route: 065
  5. HYDROCORTISONE [Suspect]
     Active Substance: HYDROCORTISONE
     Indication: Psoriasis
     Dosage: UNK
     Route: 065
  6. BETAMETHASONE [Suspect]
     Active Substance: BETAMETHASONE
     Indication: Psoriasis
     Dosage: UNK
     Route: 065
  7. MOMETASONE [Suspect]
     Active Substance: MOMETASONE
     Indication: Psoriasis
     Dosage: UNK
     Route: 065
  8. CALCIPOTRIENE [Suspect]
     Active Substance: CALCIPOTRIENE
     Indication: Psoriasis
     Dosage: UNK
     Route: 065
  9. TALTZ [Concomitant]
     Active Substance: IXEKIZUMAB
     Indication: Product used for unknown indication
     Dosage: UNK
     Route: 065

REACTIONS (14)
  - Tooth infection [Unknown]
  - Crohn^s disease [Unknown]
  - Psoriatic arthropathy [Unknown]
  - Myalgia [Unknown]
  - Arthralgia [Unknown]
  - Iron deficiency anaemia [Unknown]
  - Pharyngitis streptococcal [Unknown]
  - Psoriasis [Unknown]
  - Papule [Unknown]
  - Skin exfoliation [Unknown]
  - Skin abrasion [Unknown]
  - Rash erythematous [Unknown]
  - Rash pruritic [Unknown]
  - Treatment failure [Unknown]

NARRATIVE: CASE EVENT DATE: 20221201
